FAERS Safety Report 5360620-7 (Version None)
Quarter: 2007Q2

REPORT INFORMATION
  Report Type: 
  Country: None (occurrence: None)
  Receive Date: 20070618
  Receipt Date: 20070611
  Transmission Date: 20071010
  Serious: Yes (Hospitalization, Other)
  Sender: FDA-Public Use
  Company Number: PHMT2007CA01303

PATIENT
  Age: 77 Year
  Sex: Male
  Weight: 64.852 kg

DRUGS (4)
  1. DIOVAN HCT [Suspect]
     Indication: HYPERTENSION
     Dosage: 80/12.5MG/DAY
     Route: 048
     Dates: start: 20060418, end: 20070411
  2. DIOVAN [Suspect]
     Dosage: 80 MG/DAY
     Route: 048
     Dates: start: 20070412
  3. LIPITOR [Concomitant]
     Dosage: 20 MG, QD
     Route: 048
  4. ASPIRIN [Concomitant]
     Dosage: 80 MG, QD
     Route: 048

REACTIONS (7)
  - ASTHENIA [None]
  - DYSPNOEA [None]
  - HAEMOGLOBIN DECREASED [None]
  - HEART RATE INCREASED [None]
  - IRON DEFICIENCY ANAEMIA [None]
  - PAIN [None]
  - RENAL FAILURE [None]
